FAERS Safety Report 10024589 (Version 1)
Quarter: 2014Q1

REPORT INFORMATION
  Report Type: Spontaneous
  Country: US (occurrence: US)
  Receive Date: 20140320
  Receipt Date: 20140320
  Transmission Date: 20141002
  Serious: No
  Sender: FDA-Public Use
  Company Number: US-SHIRE-US201400530

PATIENT
  Sex: 0

DRUGS (6)
  1. VYVANSE [Suspect]
     Indication: ATTENTION DEFICIT/HYPERACTIVITY DISORDER
     Dosage: 70 MG, 1X/DAY:QD
     Route: 048
     Dates: start: 20140307
  2. RISPERDAL [Concomitant]
     Indication: AGITATION
     Dosage: 0.5 MG, 2X/DAY:BID
     Route: 048
     Dates: start: 2013
  3. RISPERDAL [Concomitant]
     Indication: MOOD SWINGS
  4. CLONIDINE [Concomitant]
     Indication: AGITATION
     Dosage: 0.1 MG, 2X/DAY:BID
     Route: 048
     Dates: start: 2012
  5. RITALIN [Concomitant]
     Indication: ATTENTION DEFICIT/HYPERACTIVITY DISORDER
     Dosage: 20 MG, 1X/DAY:QD
     Route: 048
     Dates: start: 2010
  6. TRAZODONE [Concomitant]
     Indication: INSOMNIA
     Dosage: 50 MG, 1X/DAY:QD
     Route: 048
     Dates: start: 2004

REACTIONS (2)
  - Fatigue [Not Recovered/Not Resolved]
  - Anxiety [Not Recovered/Not Resolved]
